FAERS Safety Report 7544469-2 (Version None)
Quarter: 2011Q2

REPORT INFORMATION
  Report Type: 
  Country: None (occurrence: None)
  Receive Date: 20110613
  Receipt Date: 20100616
  Transmission Date: 20111010
  Serious: Yes (Hospitalization, Other)
  Sender: FDA-Public Use
  Company Number: PHHY2008US04226

PATIENT
  Sex: Female
  Weight: 82 kg

DRUGS (33)
  1. SIROLIMUS [Concomitant]
     Dosage: 1 MG, QD
     Route: 048
  2. LISINOPRIL [Concomitant]
     Indication: HYPERTENSION
     Dosage: 40 MG, QD
     Dates: start: 20001222, end: 20080204
  3. HYDRALAZINE HCL [Concomitant]
     Indication: HYPERTENSION
     Dosage: 25 MG, QD
     Dates: start: 20080122, end: 20080204
  4. PROGRAF [Concomitant]
     Indication: IMMUNOSUPPRESSION
     Dosage: 6 MG, BID
     Dates: start: 20080229
  5. MULTI-VITAMINS [Concomitant]
  6. BACTRIM [Concomitant]
     Indication: PROPHYLAXIS
     Dosage: 1 DF, QD
     Route: 048
     Dates: start: 20080206, end: 20080229
  7. BACTRIM [Concomitant]
     Dosage: 1 TABLET, QD
     Dates: start: 20080229
  8. VALCYTE [Concomitant]
     Dosage: 450 MG, QOD
     Dates: start: 20080206
  9. ACETOXYCODONE [Concomitant]
  10. VITAMIN D [Concomitant]
     Dosage: 01 TIMES A WEEK
  11. CALAN [Concomitant]
     Indication: HYPERTENSION
     Dosage: 240 MG, QD
     Dates: start: 20080314
  12. ASPIRIN [Concomitant]
     Indication: CARDIAC DISORDER
     Dosage: 81 MG, QD
     Dates: start: 20080208
  13. PERCOCET [Concomitant]
     Dosage: 1-2 TABS WAS USED EVERY FOUR HOURS
  14. CARDIZEM CD [Concomitant]
     Dosage: 300 MG, QD
  15. MYCOPHENOLATE MOFETIL [Concomitant]
  16. NYSTATIN [Concomitant]
     Dosage: 1 ML, TID
     Dates: start: 20080206
  17. STRESSTABS [Concomitant]
     Indication: VITAMIN SUPPLEMENTATION
     Dates: start: 20080206
  18. OXYCODONE [Concomitant]
  19. CALCITRIOL [Concomitant]
     Dosage: 1CAP ONCE A DAY
  20. NIFEDIPINE [Concomitant]
     Indication: HYPERTENSION
     Dates: start: 20001222, end: 20080204
  21. ROCALTROL [Concomitant]
     Indication: MINERAL SUPPLEMENTATION
     Dosage: 0.5 UG, QD
     Dates: start: 20080214
  22. PREDNISONE [Concomitant]
     Indication: IMMUNOSUPPRESSION
     Dosage: 5 MG, QD
     Dates: start: 20080314
  23. OXYCONTIN [Concomitant]
     Dosage: 20 MG, BID
  24. COZAAR [Concomitant]
     Dosage: 50 MG, QD
  25. ROSUVASTATIN [Concomitant]
     Dosage: 5MG 3XWEEKS
  26. MYFORTIC [Suspect]
     Indication: RENAL TRANSPLANT
     Dosage: 360 MG, BID
     Route: 048
     Dates: start: 20080206, end: 20080229
  27. ELAVIL [Concomitant]
     Indication: DEPRESSION
     Dosage: 25 MG, QD
     Dates: start: 20060413
  28. MYFORTIC [Suspect]
     Dosage: 540 MG, BID
     Route: 048
     Dates: start: 20080229
  29. LANTUS [Concomitant]
     Indication: BLOOD GLUCOSE ABNORMAL
     Dosage: 15 U, NS
     Dates: start: 20080229
  30. PEPCID [Concomitant]
     Indication: ACIDOSIS
     Dosage: 20 MG, QD
     Dates: start: 20080214
  31. ACETAMINOPHEN [Concomitant]
  32. DILAUDID [Concomitant]
     Dosage: 30-60 MINUTE BEFORE DRESSING
  33. GLYBURIDE [Concomitant]
     Dosage: 2.5 MG

REACTIONS (15)
  - SEROMA [None]
  - ABDOMINAL HERNIA [None]
  - PURULENT DISCHARGE [None]
  - WOUND [None]
  - FLUID RETENTION [None]
  - MOBILITY DECREASED [None]
  - NEURALGIA [None]
  - DYSURIA [None]
  - BIOPSY KIDNEY ABNORMAL [None]
  - PAIN IN EXTREMITY [None]
  - BLOOD CREATININE INCREASED [None]
  - PAIN [None]
  - KIDNEY TRANSPLANT REJECTION [None]
  - WOUND DEHISCENCE [None]
  - TENDERNESS [None]
